FAERS Safety Report 4565632-9 (Version None)
Quarter: 2005Q1

REPORT INFORMATION
  Report Type: 
  Country: None (occurrence: None)
  Receive Date: 20050126
  Receipt Date: 20050110
  Transmission Date: 20050727
  Serious: Yes (Death, Hospitalization)
  Sender: FDA-Public Use
  Company Number: DSA_25502_2004

PATIENT
  Age: 92 Year
  Sex: Female

DRUGS (6)
  1. DILTIAZEM [Suspect]
     Indication: HYPERTENSION
     Dosage: 120 MG Q DAY PO
     Route: 048
     Dates: start: 20041102, end: 20041206
  2. ENOXAPARIN SODIUM [Suspect]
     Indication: THROMBOSIS PROPHYLAXIS
     Dosage: 40 MG Q DAY SC
     Route: 058
     Dates: start: 20041102, end: 20041118
  3. BLINDED STUDY MED (ENOXAPARIN OR PLACEBO) [Suspect]
     Indication: THROMBOSIS PROPHYLAXIS
     Dosage: DF Q DAY SC
     Route: 058
     Dates: start: 20041119, end: 20041206
  4. DIGOXIN [Suspect]
     Indication: ATRIAL FIBRILLATION
     Dosage: 0.125 MG Q DAY PO
     Route: 048
     Dates: start: 20041102, end: 20041206
  5. PEPCID [Concomitant]
  6. DOCUSATE SODIUM [Concomitant]

REACTIONS (15)
  - ACUTE RESPIRATORY FAILURE [None]
  - ARRHYTHMIA [None]
  - CARDIAC ARREST [None]
  - CHEST PAIN [None]
  - COMA [None]
  - DEHYDRATION [None]
  - DIABETES MELLITUS NON-INSULIN-DEPENDENT [None]
  - EMPYEMA [None]
  - KYPHOSIS [None]
  - NAUSEA [None]
  - PNEUMONIA [None]
  - PULMONARY EMBOLISM [None]
  - PULMONARY MASS [None]
  - SUPRAVENTRICULAR TACHYCARDIA [None]
  - URINARY TRACT INFECTION [None]
